FAERS Safety Report 20627026 (Version 2)
Quarter: 2022Q4

REPORT INFORMATION
  Report Type: Spontaneous
  Country: US (occurrence: US)
  Receive Date: 20220323
  Receipt Date: 20221103
  Transmission Date: 20230113
  Serious: No
  Sender: FDA-Public Use
  Company Number: US-UNITED THERAPEUTICS-UNT-2022-006286

PATIENT
  Age: 61 Year
  Sex: Female
  Weight: 141.5 kg

DRUGS (6)
  1. TYVASO [Suspect]
     Active Substance: TREPROSTINIL
     Indication: Pulmonary arterial hypertension
     Dosage: UNK
     Dates: start: 20210729
  2. TYVASO [Suspect]
     Active Substance: TREPROSTINIL
     Dosage: 18-96 ?G, QID
  3. TYVASO [Suspect]
     Active Substance: TREPROSTINIL
     Dosage: 96 ?G
  4. TADALAFIL [Concomitant]
     Active Substance: TADALAFIL
     Indication: Product used for unknown indication
     Dosage: UNK
     Route: 065
  5. OPSUMIT [Concomitant]
     Active Substance: MACITENTAN
     Indication: Product used for unknown indication
     Dosage: UNK
     Route: 065
  6. AMLODIPINE [Concomitant]
     Active Substance: AMLODIPINE BESYLATE
     Indication: Product used for unknown indication
     Dosage: UNK
     Route: 065

REACTIONS (5)
  - Bronchospasm [Recovered/Resolved]
  - Throat irritation [Not Recovered/Not Resolved]
  - Wrong technique in device usage process [Unknown]
  - Off label use [Unknown]
  - Device malfunction [Unknown]

NARRATIVE: CASE EVENT DATE: 20220313
